FAERS Safety Report 13878960 (Version 2)
Quarter: 2017Q3

REPORT INFORMATION
  Report Type: Spontaneous
  Country: US (occurrence: US)
  Receive Date: 20170817
  Receipt Date: 20170817
  Transmission Date: 20171127
  Serious: Yes (Death, Other)
  Sender: FDA-Public Use
  Company Number: US-EGALET US INC-US-2017EGA000757

PATIENT
  Sex: Male
  Weight: 3.5 kg

DRUGS (3)
  1. MORPHINE SULFATE. [Suspect]
     Active Substance: MORPHINE SULFATE
     Indication: SEDATIVE THERAPY
  2. MORPHINE SULFATE. [Suspect]
     Active Substance: MORPHINE SULFATE
     Indication: SKIN LESION
     Dosage: UNK
  3. MORPHINE SULFATE. [Suspect]
     Active Substance: MORPHINE SULFATE
     Indication: PAIN

REACTIONS (6)
  - Neonatal hypotension [Unknown]
  - Neonatal multi-organ failure [Fatal]
  - Pulmonary hypertension [Unknown]
  - Coagulopathy [Unknown]
  - Systemic mastocytosis [Fatal]
  - Respiratory distress [Unknown]
